FAERS Safety Report 4774207-8 (Version None)
Quarter: 2005Q3

REPORT INFORMATION
  Report Type: 
  Country: None (occurrence: None)
  Receive Date: 20050914
  Receipt Date: 20050401
  Transmission Date: 20060218
  Serious: Yes (Other)
  Sender: FDA-Public Use
  Company Number: 163-20785-05040192

PATIENT
  Sex: Female

DRUGS (1)
  1. THALOMID [Suspect]
     Indication: LEIOMYOSARCOMA
     Dosage: SEE IMAGE
     Route: 048
     Dates: start: 20020414

REACTIONS (2)
  - DYSPNOEA [None]
  - FATIGUE [None]
